FAERS Safety Report 14817546 (Version 1)
Quarter: 2018Q2

REPORT INFORMATION
  Report Type: Spontaneous
  Country: US (occurrence: US)
  Receive Date: 20180426
  Receipt Date: 20180426
  Transmission Date: 20180711
  Serious: No
  Sender: FDA-Public Use
  Company Number: US-SENTYNL THERAPEUTICS, INC.  -2046657

PATIENT
  Age: 48 Year
  Sex: Female

DRUGS (1)
  1. LEVORPHANOL TARTRATE. [Suspect]
     Active Substance: LEVORPHANOL TARTRATE
     Indication: SCOLIOSIS
     Route: 048
     Dates: start: 20170908

REACTIONS (5)
  - Migraine [Unknown]
  - Nausea [Unknown]
  - Face oedema [Unknown]
  - Vision blurred [Unknown]
  - Hyperhidrosis [Unknown]
